FAERS Safety Report 5487180-4 (Version None)
Quarter: 2007Q3

REPORT INFORMATION
  Report Type: 
  Country: None (occurrence: None)
  Receive Date: 20070925
  Receipt Date: 20070726
  Transmission Date: 20080115
  Serious: No
  Sender: FDA-Public Use
  Company Number: 2007US001401

PATIENT
  Age: 59 Year
  Sex: Female

DRUGS (5)
  1. VESICARE [Suspect]
     Indication: URINARY INCONTINENCE
     Dosage: 5 MG, ORAL
     Route: 048
     Dates: start: 20070331, end: 20070618
  2. NEXIUM [Concomitant]
  3. PROPRANOLOL [Concomitant]
  4. CLONAZEPAM [Concomitant]
  5. CLONAZEPAM [Concomitant]

REACTIONS (1)
  - FIBROMYALGIA [None]
